FAERS Safety Report 12139816 (Version 2)
Quarter: 2016Q1

REPORT INFORMATION
  Report Type: Report from Study
  Country: BR (occurrence: BR)
  Receive Date: 20160303
  Receipt Date: 20160317
  Transmission Date: 20160526
  Serious: Yes (Death)
  Sender: FDA-Public Use
  Company Number: PHHY2016BR028232

PATIENT
  Age: 89 Year
  Sex: Female
  Weight: 89 kg

DRUGS (5)
  1. DONEPEZIL. [Concomitant]
     Active Substance: DONEPEZIL
     Indication: MEMORY IMPAIRMENT
     Dosage: 5 MG, QD
     Route: 048
     Dates: start: 201602, end: 201602
  2. ENALAPRIL [Concomitant]
     Active Substance: ENALAPRIL
     Indication: PRODUCT USED FOR UNKNOWN INDICATION
     Dosage: 20 MG, QD (STARTED MORE THAN 10 YEARS AGO)
     Route: 048
     Dates: end: 201602
  3. CLOPIN [Concomitant]
     Active Substance: CLOPIDOGREL BISULFATE
     Indication: MEMORY IMPAIRMENT
     Dosage: 75 MG, QD
     Route: 048
     Dates: start: 201602, end: 201602
  4. EXELON PATCH [Suspect]
     Active Substance: RIVASTIGMINE
     Indication: DEMENTIA ALZHEIMER^S TYPE
     Dosage: PATCH 15 (CM2)
     Route: 062
     Dates: start: 201602, end: 201602
  5. MEMANTINE. [Concomitant]
     Active Substance: MEMANTINE
     Indication: MEMORY IMPAIRMENT
     Dosage: 5 MG, QD (10 MG HALF TABLET)
     Route: 048
     Dates: start: 201602, end: 201602

REACTIONS (3)
  - Decreased appetite [Recovered/Resolved]
  - Influenza [Recovered/Resolved]
  - Death [Fatal]

NARRATIVE: CASE EVENT DATE: 20160212
